FAERS Safety Report 10450844 (Version 1)
Quarter: 2014Q3

REPORT INFORMATION
  Report Type: Spontaneous
  Country: US (occurrence: None)
  Receive Date: 20140910
  Receipt Date: 20140910
  Transmission Date: 20150326
  Serious: No
  Sender: FDA-Public Use
  Company Number: CC14-1293

PATIENT
  Sex: Male

DRUGS (1)
  1. LIDOCAINE AND PRILOCAINE CREAM [Suspect]
     Active Substance: LIDOCAINE\PRILOCAINE
     Indication: INJECTION SITE PAIN

REACTIONS (2)
  - Drug ineffective [None]
  - Product quality issue [None]
